FAERS Safety Report 10881342 (Version 4)
Quarter: 2015Q1

REPORT INFORMATION
  Report Type: Spontaneous
  Country: BR (occurrence: BR)
  Receive Date: 20150303
  Receipt Date: 20150320
  Transmission Date: 20150721
  Serious: Yes (Life-Threatening, Hospitalization, Other)
  Sender: FDA-Public Use
  Company Number: PHHY2015BR024383

PATIENT
  Sex: Female

DRUGS (2)
  1. GILENYA [Suspect]
     Active Substance: FINGOLIMOD HYDROCHLORIDE
     Indication: MULTIPLE SCLEROSIS
     Dosage: 0.5 MG, QD
     Route: 048
  2. DIAZEPAM. [Suspect]
     Active Substance: DIAZEPAM
     Indication: SEIZURE
     Dosage: UNK UKN, UNK
     Route: 065

REACTIONS (6)
  - Seizure [Recovering/Resolving]
  - Head injury [Recovering/Resolving]
  - Drug level increased [Unknown]
  - Respiratory depression [Recovered/Resolved]
  - Fall [Recovering/Resolving]
  - Depressed level of consciousness [Unknown]
